FAERS Safety Report 6156986-0 (Version None)
Quarter: 2009Q2

REPORT INFORMATION
  Report Type: 
  Country: None (occurrence: None)
  Receive Date: 20090413
  Receipt Date: 20090413
  Transmission Date: 20091009
  Serious: Yes (Other)
  Sender: FDA-Public Use
  Company Number: None

PATIENT
  Sex: Male
  Weight: 12.7007 kg

DRUGS (1)
  1. SINGULAIR [Suspect]
     Indication: BRONCHIAL HYPERREACTIVITY
     Dosage: 1 PACKAGE ORAL GRANULES ONCE DAILY PO
     Route: 048
     Dates: start: 20090401, end: 20090406

REACTIONS (4)
  - AGGRESSION [None]
  - AGITATION [None]
  - INSOMNIA [None]
  - NIGHTMARE [None]
